FAERS Safety Report 5420914-3 (Version None)
Quarter: 2007Q3

REPORT INFORMATION
  Report Type: 
  Country: None (occurrence: None)
  Receive Date: 20070821
  Receipt Date: 20070810
  Transmission Date: 20080115
  Serious: Yes (Hospitalization)
  Sender: FDA-Public Use
  Company Number: FR-ROCHE-511606

PATIENT
  Age: 87 Year
  Sex: Female

DRUGS (6)
  1. ROCEPHIN [Suspect]
     Dosage: FORM REPORTED AS INJECTABLE SOLUTION
     Route: 042
     Dates: start: 20070710
  2. LASIX [Suspect]
     Indication: CARDIAC FAILURE
     Route: 048
     Dates: end: 20070710
  3. OMEPRAZOLE [Suspect]
     Indication: DRUG USE FOR UNKNOWN INDICATION
     Route: 048
     Dates: start: 20070710
  4. PAROXETINE HCL [Suspect]
     Indication: MAJOR DEPRESSION
     Route: 048
     Dates: end: 20070710
  5. MOVICOL [Concomitant]
     Route: 048
  6. DURAGESIC-100 [Concomitant]
     Indication: PAIN
     Dosage: ROUTE REPORTED AS LOCAL.
     Route: 050

REACTIONS (1)
  - HEMIPLEGIA [None]
